FAERS Safety Report 12971151 (Version 2)
Quarter: 2016Q4

REPORT INFORMATION
  Report Type: Spontaneous
  Country: US (occurrence: US)
  Receive Date: 20161123
  Receipt Date: 20161128
  Transmission Date: 20170207
  Serious: No
  Sender: FDA-Public Use
  Company Number: US-JAZZ-2016-US-019256

PATIENT
  Sex: Female

DRUGS (12)
  1. XYREM [Suspect]
     Active Substance: SODIUM OXYBATE
     Dosage: 2 G, SECOND DOSE
     Route: 048
     Dates: start: 201410
  2. MULTIVITAMINS                      /00116001/ [Concomitant]
  3. IRON [Concomitant]
     Active Substance: IRON
  4. XYREM [Suspect]
     Active Substance: SODIUM OXYBATE
     Indication: NARCOLEPSY
     Dosage: 3 G, BID
     Route: 048
     Dates: start: 200410, end: 200502
  5. XYREM [Suspect]
     Active Substance: SODIUM OXYBATE
     Dosage: 2 G, THIRD DOSE
     Route: 048
     Dates: start: 201410
  6. VITAMIN D3 [Concomitant]
     Active Substance: CHOLECALCIFEROL
  7. XYREM [Suspect]
     Active Substance: SODIUM OXYBATE
     Indication: CATAPLEXY
     Dosage: DOSE ADJUSTMENTS
     Route: 048
     Dates: start: 200502, end: 201410
  8. PROBIOTIC                          /06395501/ [Concomitant]
     Active Substance: BIFIDOBACTERIUM ANIMALIS SUBSP. LACTIS
  9. ZANTAC [Concomitant]
     Active Substance: RANITIDINE HYDROCHLORIDE
  10. DEXTROAMPHETAMINE                  /00016601/ [Concomitant]
     Active Substance: DEXTROAMPHETAMINE
  11. XYREM [Suspect]
     Active Substance: SODIUM OXYBATE
     Dosage: 3.5 G,FIRST DOSE
     Route: 048
     Dates: start: 201410
  12. VITAMIN C [Concomitant]
     Active Substance: ASCORBIC ACID

REACTIONS (2)
  - Gastrooesophageal reflux disease [Unknown]
  - Stress [Not Recovered/Not Resolved]
